FAERS Safety Report 9117121 (Version 1)
Quarter: 2013Q1

REPORT INFORMATION
  Report Type: Spontaneous
  Country: US (occurrence: US)
  Receive Date: 20130225
  Receipt Date: 20130225
  Transmission Date: 20140127
  Serious: No
  Sender: FDA-Public Use
  Company Number: US-009507513-1302USA009776

PATIENT
  Age: 22 Year
  Sex: Female
  Weight: 149.66 kg

DRUGS (1)
  1. NEXPLANON [Suspect]
     Indication: CONTRACEPTION
     Dosage: EVERY 3 YEARS
     Route: 059
     Dates: start: 20120925

REACTIONS (5)
  - Device breakage [Unknown]
  - Device difficult to use [Unknown]
  - Pain in extremity [Unknown]
  - Hypoaesthesia [Unknown]
  - Implant site pain [Unknown]
